FAERS Safety Report 6713038-6 (Version None)
Quarter: 2010Q2

REPORT INFORMATION
  Report Type: 
  Country: None (occurrence: None)
  Receive Date: 20100505
  Receipt Date: 20100505
  Transmission Date: 20101027
  Serious: Yes (Hospitalization)
  Sender: FDA-Public Use
  Company Number: None

PATIENT
  Age: 9 Year
  Sex: Male
  Weight: 29.9374 kg

DRUGS (2)
  1. LIQUID MOTRIN JR. STRENGTH JUNIOR STRENGTH 50580-207 50580-207-24 [Suspect]
     Indication: COSTOCHONDRITIS
     Dosage: 2-TEASPOONS 3- TIMES ; 2-TABLETS 1-TIME
     Dates: start: 20100425, end: 20100426
  2. LIQUID MOTRIN JR. STRENGTH JUNIOR STRENGTH 50580-207 50580-207-24 [Suspect]
     Indication: COSTOCHONDRITIS
     Dosage: 2-TEASPOONS 3- TIMES ; 2-TABLETS 1-TIME
     Dates: start: 20100427, end: 20100427

REACTIONS (2)
  - BACK PAIN [None]
  - DYSPNOEA [None]
